FAERS Safety Report 5871222-8 (Version None)
Quarter: 2008Q3

REPORT INFORMATION
  Report Type: 
  Country: None (occurrence: None)
  Receive Date: 20080829
  Receipt Date: 20071107
  Transmission Date: 20090109
  Serious: Yes (Hospitalization)
  Sender: FDA-Public Use
  Company Number: 2007-01094FE

PATIENT
  Age: 48 Year
  Sex: Male

DRUGS (3)
  1. PROTIRELIN [Suspect]
     Indication: DIAGNOSTIC PROCEDURE
     Route: 042
  2. LHRH  (GONADORELIN) [Suspect]
     Indication: DIAGNOSTIC PROCEDURE
     Route: 042
  3. INSULIN [Suspect]
     Indication: DIAGNOSTIC PROCEDURE
     Route: 042

REACTIONS (2)
  - BLINDNESS UNILATERAL [None]
  - PITUITARY HAEMORRHAGE [None]
